FAERS Safety Report 8580907-4 (Version None)
Quarter: 2012Q3

REPORT INFORMATION
  Report Type: 
  Country: None (occurrence: None)
  Receive Date: 20120809
  Receipt Date: 20120731
  Transmission Date: 20120928
  Serious: Yes (Other)
  Sender: FDA-Public Use
  Company Number: SE-GENZYME-POMP-1002358

PATIENT
  Sex: Male
  Weight: 11.7 kg

DRUGS (5)
  1. NEXIUM [Concomitant]
     Indication: GASTROOESOPHAGEAL REFLUX DISEASE
     Dosage: 10 MG, UNK
     Route: 065
     Dates: start: 20110201
  2. ANTIBIOTICS [Concomitant]
     Indication: INFECTION
     Dosage: UNK UNK, UNK
     Route: 065
     Dates: start: 20120101
  3. MYOZYME [Suspect]
     Indication: GLYCOGEN STORAGE DISEASE TYPE II
     Dosage: 20 MG/KG, Q2W
     Route: 042
     Dates: start: 20110513
  4. METOPROLOLTARTRAAT ALPHARMA [Concomitant]
     Indication: CARDIAC DISORDER
     Dosage: 5 MG, BID
     Route: 065
     Dates: start: 20110501
  5. DURBIS [Concomitant]
     Indication: CARDIAC DISORDER
     Dosage: 100 MG/ML, UNK
     Route: 065
     Dates: start: 20110501

REACTIONS (6)
  - PNEUMONIA [None]
  - BRAIN STEM SYNDROME [None]
  - ANTIBODY TEST ABNORMAL [None]
  - BREATHING-RELATED SLEEP DISORDER [None]
  - DYSPHAGIA [None]
  - EATING DISORDER [None]
